FAERS Safety Report 11917291 (Version 1)
Quarter: 2016Q1

REPORT INFORMATION
  Report Type: Spontaneous
  Country: IT (occurrence: IT)
  Receive Date: 20160114
  Receipt Date: 20160114
  Transmission Date: 20160526
  Serious: Yes (Other)
  Sender: FDA-Public Use
  Company Number: IT-ABBVIE-16P-083-1537654-00

PATIENT
  Age: 5 Year
  Sex: Male

DRUGS (1)
  1. VECLAM [Suspect]
     Active Substance: CLARITHROMYCIN
     Indication: UPPER RESPIRATORY TRACT INFECTION
     Dosage: FORM STRENGTH: 250 MG/5 ML
     Route: 048
     Dates: start: 20150102, end: 20150103

REACTIONS (2)
  - Rash [Unknown]
  - Eyelid oedema [Unknown]

NARRATIVE: CASE EVENT DATE: 20150103
